FAERS Safety Report 9747626 (Version 2)
Quarter: 2014Q1

REPORT INFORMATION
  Report Type: Spontaneous
  Country: US (occurrence: None)
  Receive Date: 20131205
  Receipt Date: 20140102
  Transmission Date: 20141002
  Serious: Yes (Other)
  Sender: FDA-Public Use
  Company Number: ADR-2013-02193

PATIENT
  Age: 47 Year
  Sex: Female

DRUGS (4)
  1. BACLOFEN INTRATHECAL 10.0 MG/ML [Suspect]
     Indication: PAIN
     Dosage: 3.7474 MCG/DAY
  2. MORPHINE 7 MG/ML [Suspect]
     Indication: PAIN
     Dosage: 2.79 MG/DAY
  3. MARCAINE (BUPIVACAINE) 900 MG/ML [Suspect]
  4. OXYCODONE [Suspect]

REACTIONS (5)
  - Malaise [None]
  - Device malfunction [None]
  - Drug resistance [None]
  - Back disorder [None]
  - Device dislocation [None]
